FAERS Safety Report 9385110 (Version 1)
Quarter: 2013Q3

REPORT INFORMATION
  Report Type: Spontaneous
  Country: DE (occurrence: None)
  Receive Date: 20130701
  Receipt Date: 20130701
  Transmission Date: 20140515
  Serious: Yes (Other)
  Sender: FDA-Public Use
  Company Number: GER/GER/13/0030223

PATIENT
  Age: 70 Year
  Sex: Male

DRUGS (5)
  1. SIMVASTATIN (SIMVASTATIN) [Suspect]
     Indication: HYPERCHOLESTEROLAEMIA
     Route: 048
     Dates: start: 2012, end: 20130325
  2. DOPADURA C100/25MG RETARD (SINEMET) [Concomitant]
  3. AMANTADINE SULFAT 100MG (AMANTADINE SULFATE) [Concomitant]
  4. TASMAR 100 MG (TOLCAPONE) [Concomitant]
  5. RALNEA 8MG RETARD (ROPINIROLE) [Concomitant]

REACTIONS (2)
  - Myopathy [None]
  - Paraparesis [None]
